FAERS Safety Report 7997674-5 (Version None)
Quarter: 2011Q4

REPORT INFORMATION
  Report Type: 
  Country: None (occurrence: None)
  Receive Date: 20111221
  Receipt Date: 20111212
  Transmission Date: 20120403
  Serious: Yes (Other)
  Sender: FDA-Public Use
  Company Number: TR-JHP PHARMACEUTICALS, LLC-JHP201100642

PATIENT

DRUGS (2)
  1. COLY-MYCIN M [Suspect]
     Indication: PNEUMONIA BACTERIAL
     Dosage: 2 MILLION IU DIVIDED INTO 2 DOSES DAILY
     Route: 055
  2. TIGECYCLINE [Concomitant]
     Indication: PNEUMONIA BACTERIAL

REACTIONS (1)
  - BRONCHOSPASM [None]
